FAERS Safety Report 8756553 (Version 1)
Quarter: 2012Q4

REPORT INFORMATION
  Report Type: 
  Country: US (occurrence: US)
  Receive Date: 20120828
  Receipt Date: 20120828
  Transmission Date: 20130627
  Serious: No
  Sender: FDA-Public Use
  Company Number: US-BIOGENIDEC-2012BI032848

PATIENT
  Sex: Female

DRUGS (2)
  1. AVONEX [Suspect]
     Indication: MULTIPLE SCLEROSIS
     Route: 030
     Dates: start: 20040930, end: 20110903
  2. AVONEX [Suspect]
     Indication: MULTIPLE SCLEROSIS
     Route: 030
     Dates: start: 20111111

REACTIONS (5)
  - Muscle contractions involuntary [Recovered/Resolved]
  - Hypoaesthesia [Recovered/Resolved]
  - Depressed mood [Recovered/Resolved]
  - Joint swelling [Not Recovered/Not Resolved]
  - Fear of needles [Recovered/Resolved]
